FAERS Safety Report 8076380-5 (Version None)
Quarter: 2012Q1

REPORT INFORMATION
  Report Type: 
  Country: None (occurrence: None)
  Receive Date: 20120127
  Receipt Date: 20120127
  Transmission Date: 20120608
  Serious: Yes (Other)
  Sender: FDA-Public Use
  Company Number: None

PATIENT
  Age: 52 Year
  Sex: Female
  Weight: 47.627 kg

DRUGS (1)
  1. LEVOFLOXACIN [Suspect]
     Indication: DIVERTICULITIS
     Route: 002
     Dates: start: 20120117, end: 20120124

REACTIONS (5)
  - TENDONITIS [None]
  - ABASIA [None]
  - SUICIDAL IDEATION [None]
  - FEAR [None]
  - DEPRESSION [None]
